FAERS Safety Report 8319405-1 (Version None)
Quarter: 2012Q2

REPORT INFORMATION
  Report Type: 
  Country: None (occurrence: None)
  Receive Date: 20120427
  Receipt Date: 20120423
  Transmission Date: 20120825
  Serious: Yes (Death)
  Sender: FDA-Public Use
  Company Number: PHHY2012US035386

PATIENT
  Age: 49 Year
  Sex: Female

DRUGS (6)
  1. GABAPENTIN [Suspect]
  2. DILTIAZEM [Suspect]
  3. LISINOPRIL [Suspect]
     Dosage: UNK
  4. HYDROCHLOROTHIAZIDE [Suspect]
  5. VALPROIC ACID [Suspect]
  6. WARFARIN SODIUM [Suspect]

REACTIONS (1)
  - COMPLETED SUICIDE [None]
